FAERS Safety Report 17147259 (Version 1)
Quarter: 2019Q4

REPORT INFORMATION
  Report Type: Spontaneous
  Country: GB (occurrence: GB)
  Receive Date: 20191212
  Receipt Date: 20191212
  Transmission Date: 20200122
  Serious: Yes (Other)
  Sender: FDA-Public Use
  Company Number: GB-GLAXOSMITHKLINE-GB2019GSK217332

PATIENT
  Age: 58 Year
  Sex: Female

DRUGS (3)
  1. NIQUITIN [Suspect]
     Active Substance: NICOTINE
     Dosage: 0.5 DF
     Route: 062
     Dates: start: 20191120, end: 20191120
  2. NIQUITIN [Suspect]
     Active Substance: NICOTINE
     Dosage: 0.5 DF
     Route: 062
     Dates: start: 20191114, end: 20191114
  3. NIQUITIN [Suspect]
     Active Substance: NICOTINE
     Indication: SMOKING CESSATION THERAPY
     Dosage: 0.5 DF, QD
     Route: 062

REACTIONS (14)
  - Heart rate increased [Recovered/Resolved]
  - Chills [Recovered/Resolved]
  - Hyperhidrosis [Recovered/Resolved]
  - Incorrect product administration duration [Unknown]
  - Rhinorrhoea [Recovered/Resolved]
  - Nausea [Recovered/Resolved]
  - Wrong technique in product usage process [Unknown]
  - Vomiting [Recovered/Resolved]
  - Body temperature decreased [Recovered/Resolved]
  - Muscular weakness [Recovered/Resolved]
  - Loss of consciousness [Recovered/Resolved]
  - Feeling abnormal [Recovered/Resolved]
  - Toxicity to various agents [Recovered/Resolved]
  - Eye discharge [Recovered/Resolved]

NARRATIVE: CASE EVENT DATE: 20191114
